FAERS Safety Report 25659252 (Version 1)
Quarter: 2025Q3

REPORT INFORMATION
  Report Type: Report from Study
  Country: MX (occurrence: MX)
  Receive Date: 20250808
  Receipt Date: 20250808
  Transmission Date: 20251020
  Serious: Yes (Other)
  Sender: ELI LILLY AND COMPANY
  Company Number: MX-Merck Healthcare KGaA-2025038852

PATIENT
  Age: 70 Year
  Sex: Female

DRUGS (2)
  1. CETUXIMAB [Suspect]
     Active Substance: CETUXIMAB
     Indication: Colorectal cancer
     Dosage: 800 MG, 2/M
     Route: 042
     Dates: start: 20240507
  2. METFORMIN [Concomitant]
     Active Substance: METFORMIN HYDROCHLORIDE
     Indication: Type 2 diabetes mellitus
     Dosage: UNK UNK, BID
     Route: 065

REACTIONS (3)
  - Peripheral vascular disorder [Not Recovered/Not Resolved]
  - Fall [Recovering/Resolving]
  - Fractured coccyx [Recovering/Resolving]

NARRATIVE: CASE EVENT DATE: 20250507
